FAERS Safety Report 13480963 (Version 3)
Quarter: 2017Q2

REPORT INFORMATION
  Report Type: Spontaneous
  Country: US (occurrence: US)
  Receive Date: 20170425
  Receipt Date: 20170516
  Transmission Date: 20170830
  Serious: Yes (Other)
  Sender: FDA-Public Use
  Company Number: US-BAUSCH-BL-2017-010389

PATIENT
  Age: 67 Year
  Sex: Male

DRUGS (3)
  1. PROVENGE [Suspect]
     Active Substance: SIPULEUCEL-T
     Route: 042
     Dates: start: 20170417, end: 20170417
  2. PROVENGE [Suspect]
     Active Substance: SIPULEUCEL-T
     Indication: PROSTATE CANCER METASTATIC
     Route: 042
     Dates: start: 20170306, end: 20170306
  3. PROVENGE [Suspect]
     Active Substance: SIPULEUCEL-T
     Route: 042
     Dates: start: 20170320, end: 20170320

REACTIONS (5)
  - Nausea [Unknown]
  - Hypotension [Unknown]
  - Bradycardia [Unknown]
  - Headache [Unknown]
  - Hyperhidrosis [Unknown]

NARRATIVE: CASE EVENT DATE: 20170417
